FAERS Safety Report 7686660-0 (Version None)
Quarter: 2011Q3

REPORT INFORMATION
  Report Type: 
  Country: None (occurrence: None)
  Receive Date: 20110816
  Receipt Date: 20110803
  Transmission Date: 20111222
  Serious: Yes (Hospitalization)
  Sender: FDA-Public Use
  Company Number: US-ACTELION-A-NJ2011-52449

PATIENT

DRUGS (5)
  1. COUMADIN [Concomitant]
  2. REVATIO [Concomitant]
  3. CALCIUM CHANNEL BLOCKERS [Concomitant]
  4. TRACLEER [Concomitant]
     Indication: PULMONARY ARTERIAL HYPERTENSION
     Dosage: UNK
     Route: 048
     Dates: start: 20100708, end: 20110701
  5. VENTAVIS [Suspect]
     Indication: PULMONARY ARTERIAL HYPERTENSION
     Dosage: UNK
     Route: 055
     Dates: start: 20100726, end: 20110701

REACTIONS (1)
  - PULMONARY EMBOLISM [None]
